FAERS Safety Report 15621215 (Version 1)
Quarter: 2018Q4

REPORT INFORMATION
  Report Type: Spontaneous
  Country: US (occurrence: US)
  Receive Date: 20181115
  Receipt Date: 20181115
  Transmission Date: 20190205
  Serious: No
  Sender: FDA-Public Use
  Company Number: US-VERTEX PHARMACEUTICALS-2018-008361

PATIENT
  Age: 6 Year
  Sex: Male

DRUGS (10)
  1. CREON [Concomitant]
     Active Substance: PANCRELIPASE AMYLASE\PANCRELIPASE LIPASE\PANCRELIPASE PROTEASE
     Dosage: 6000 UNIT
  2. RANITIDINE. [Concomitant]
     Active Substance: RANITIDINE
  3. PULMOZYME [Concomitant]
     Active Substance: DORNASE ALFA
  4. HYPERSAL [Concomitant]
  5. PROAIR HFA [Concomitant]
     Active Substance: ALBUTEROL SULFATE
  6. SALT [Concomitant]
     Active Substance: SODIUM CHLORIDE
  7. ORKAMBI [Suspect]
     Active Substance: IVACAFTOR\LUMACAFTOR
     Indication: CYSTIC FIBROSIS
     Dosage: 200-250MG, BID
     Route: 048
     Dates: start: 20180628
  8. CULTURELLE [Concomitant]
     Active Substance: LACTOBACILLUS RHAMNOSUS
  9. PREVACID [Concomitant]
     Active Substance: LANSOPRAZOLE
  10. QVAR [Concomitant]
     Active Substance: BECLOMETHASONE DIPROPIONATE

REACTIONS (1)
  - Nasopharyngitis [Not Recovered/Not Resolved]

NARRATIVE: CASE EVENT DATE: 20181107
